FAERS Safety Report 8908092 (Version 1)
Quarter: 2012Q4

REPORT INFORMATION
  Report Type: 
  Country: IE (occurrence: IE)
  Receive Date: 20121113
  Receipt Date: 20121113
  Transmission Date: 20130627
  Serious: Yes (Other)
  Sender: FDA-Public Use
  Company Number: IE-MERCK-1210IRL010183

PATIENT
  Age: 73 Year
  Sex: Female

DRUGS (2)
  1. EZETROL [Suspect]
     Indication: HYPERCHOLESTEROLAEMIA
     Dosage: 10 mg, qd
     Route: 048
     Dates: start: 20121002
  2. KEFLEX [Suspect]
     Indication: URINARY TRACT INFECTION
     Dosage: 500 mg, tid
     Route: 048
     Dates: start: 20121002, end: 20121009

REACTIONS (2)
  - Nausea [Recovered/Resolved]
  - Vomiting [Recovered/Resolved]
